FAERS Safety Report 12658191 (Version 3)
Quarter: 2016Q3

REPORT INFORMATION
  Report Type: Report from Study
  Country: US (occurrence: US)
  Receive Date: 20160817
  Receipt Date: 20160913
  Transmission Date: 20161109
  Serious: Yes (Hospitalization)
  Sender: FDA-Public Use
  Company Number: US-ROCHE-1814648

PATIENT
  Sex: Male

DRUGS (1)
  1. XOLAIR [Suspect]
     Active Substance: OMALIZUMAB
     Indication: IDIOPATHIC URTICARIA
     Route: 058

REACTIONS (6)
  - Swelling face [Unknown]
  - Throat tightness [Unknown]
  - Eye swelling [Unknown]
  - Musculoskeletal stiffness [Unknown]
  - Anxiety [Unknown]
  - Pharyngeal oedema [Unknown]
